FAERS Safety Report 9556835 (Version 1)
Quarter: 2013Q3

REPORT INFORMATION
  Report Type: Spontaneous
  Country: US (occurrence: US)
  Receive Date: 20130926
  Receipt Date: 20130926
  Transmission Date: 20140515
  Serious: No
  Sender: FDA-Public Use
  Company Number: US-009507513-1309USA011080

PATIENT
  Age: 30 Year
  Sex: Female

DRUGS (1)
  1. IMPLANON [Suspect]
     Indication: CONTRACEPTION
     Dosage: UNK
     Dates: start: 201211

REACTIONS (6)
  - Haemorrhage [Unknown]
  - Headache [Unknown]
  - Back pain [Unknown]
  - Menorrhagia [Unknown]
  - Mood altered [Unknown]
  - Acne [Unknown]
